FAERS Safety Report 24395622 (Version 1)
Quarter: 2024Q4

REPORT INFORMATION
  Report Type: Spontaneous
  Country: DE (occurrence: DE)
  Receive Date: 20241004
  Receipt Date: 20241004
  Transmission Date: 20250115
  Serious: Yes (Other)
  Sender: HRA PHARMA
  Company Number: DE-ORG100014127-2024000279

PATIENT
  Sex: Female

DRUGS (1)
  1. METOPIRONE [Suspect]
     Active Substance: METYRAPONE
     Indication: Endocrine test
     Route: 048

REACTIONS (2)
  - Adrenocortical insufficiency acute [Recovered/Resolved]
  - Influenza [Recovered/Resolved]
